FAERS Safety Report 16702839 (Version 2)
Quarter: 2019Q3

REPORT INFORMATION
  Report Type: Spontaneous
  Country: SG (occurrence: SG)
  Receive Date: 20190814
  Receipt Date: 20190911
  Transmission Date: 20191004
  Serious: Yes (Hospitalization)
  Sender: FDA-Public Use
  Company Number: SG-ROCHE-2371430

PATIENT
  Age: 31 Year
  Sex: Male

DRUGS (4)
  1. ANAREX [ORPHENADRINE CITRATE;PARACETAMOL] [Concomitant]
     Indication: PYREXIA
  2. ANAREX [ORPHENADRINE CITRATE;PARACETAMOL] [Concomitant]
     Indication: PAIN
     Dosage: ANAREX (ORPHENADRINE 35MG/ PARACETAMOL 450MG) 2 TABLETS ONCE
     Route: 065
     Dates: start: 20190804
  3. FEXOFENADINE HYDROCHLORIDE. [Concomitant]
     Active Substance: FEXOFENADINE HYDROCHLORIDE
     Indication: NASAL CONGESTION
     Route: 065
  4. XOFLUZA [Suspect]
     Active Substance: BALOXAVIR MARBOXIL
     Indication: INFLUENZA
     Route: 048
     Dates: start: 20190804, end: 20190804

REACTIONS (1)
  - Seizure [Unknown]

NARRATIVE: CASE EVENT DATE: 20190804
